FAERS Safety Report 25938034 (Version 1)
Quarter: 2025Q4

REPORT INFORMATION
  Report Type: Spontaneous
  Country: US (occurrence: US)
  Receive Date: 20251018
  Receipt Date: 20251018
  Transmission Date: 20260117
  Serious: Yes (Death, Other)
  Sender: AMGEN
  Company Number: US-AMGEN-USASP2025206258

PATIENT
  Age: 60 Year
  Sex: Male

DRUGS (3)
  1. BLINATUMOMAB [Suspect]
     Active Substance: BLINATUMOMAB
     Indication: Acute leukaemia
     Dosage: UNK
     Route: 065
  2. PREDNISONE [Suspect]
     Active Substance: PREDNISONE
     Indication: Acute leukaemia
     Dosage: UNK
     Route: 065
  3. DASATINIB [Concomitant]
     Active Substance: DASATINIB
     Indication: Acute leukaemia

REACTIONS (4)
  - Death [Fatal]
  - Acute leukaemia [Unknown]
  - Encephalopathy [Unknown]
  - Sepsis [Unknown]
